FAERS Safety Report 6966790-9 (Version None)
Quarter: 2010Q3

REPORT INFORMATION
  Report Type: 
  Country: None (occurrence: None)
  Receive Date: 20100906
  Receipt Date: 20100823
  Transmission Date: 20110219
  Serious: Yes (Disabling)
  Sender: FDA-Public Use
  Company Number: PHFR2010GB01384

PATIENT
  Sex: Female

DRUGS (4)
  1. CLOZARIL [Suspect]
     Indication: SCHIZOPHRENIA
     Dosage: 75 MG, QD
     Route: 048
     Dates: start: 20100721
  2. FLUOXETINE [Concomitant]
     Dosage: 60 MG, UNK
  3. BUSPIRONE HCL [Concomitant]
     Dosage: 5 MG, TID
  4. CERAZETTE [Concomitant]
     Indication: CONTRACEPTION

REACTIONS (4)
  - DRUG DOSE OMISSION [None]
  - DYSPNOEA [None]
  - EPISTAXIS [None]
  - INCREASED UPPER AIRWAY SECRETION [None]
